FAERS Safety Report 25966331 (Version 2)
Quarter: 2025Q4

REPORT INFORMATION
  Report Type: Spontaneous
  Country: JP (occurrence: JP)
  Receive Date: 20251028
  Receipt Date: 20251202
  Transmission Date: 20260117
  Serious: Yes (Hospitalization, Other)
  Sender: GLAXOSMITHKLINE
  Company Number: JP-GSK-JP2025JPN136758

PATIENT
  Age: 60 Year
  Sex: Male

DRUGS (1)
  1. DAPRODUSTAT [Suspect]
     Active Substance: DAPRODUSTAT
     Dosage: UNK

REACTIONS (2)
  - Colitis ulcerative [Unknown]
  - Dialysis [Unknown]

NARRATIVE: CASE EVENT DATE: 20250201
